APPROVED DRUG PRODUCT: NILOTINIB HYDROCHLORIDE
Active Ingredient: NILOTINIB HYDROCHLORIDE
Strength: EQ 50MG BASE
Dosage Form/Route: CAPSULE;ORAL
Application: A203640 | Product #001 | TE Code: AB
Applicant: APOTEX INC
Approved: Jan 5, 2024 | RLD: No | RS: No | Type: RX